FAERS Safety Report 19590521 (Version 1)
Quarter: 2021Q3

REPORT INFORMATION
  Report Type: Spontaneous
  Country: FR (occurrence: FR)
  Receive Date: 20210721
  Receipt Date: 20210721
  Transmission Date: 20211014
  Serious: Yes (Congenital Anomaly, Other)
  Sender: FDA-Public Use
  Company Number: FR-MYLANLABS-2021M1043721

PATIENT
  Age: 1 Day
  Sex: Male

DRUGS (2)
  1. HYDROCORTISONE. [Suspect]
     Active Substance: HYDROCORTISONE
     Indication: LYMPHOCYTIC HYPOPHYSITIS
     Dosage: 20 GRAM
     Route: 064
  2. LEVOTHYROX [Suspect]
     Active Substance: LEVOTHYROXINE
     Indication: LYMPHOCYTIC HYPOPHYSITIS
     Dosage: 100 MICROGRAM
     Route: 064

REACTIONS (5)
  - Retrognathia [Not Recovered/Not Resolved]
  - Cleft palate [Not Recovered/Not Resolved]
  - Congenital adrenal gland hypoplasia [Not Recovered/Not Resolved]
  - Hirsutism [Not Recovered/Not Resolved]
  - Foetal exposure during pregnancy [Recovered/Resolved]
